FAERS Safety Report 5968331-1 (Version None)
Quarter: 2008Q4

REPORT INFORMATION
  Report Type: 
  Country: None (occurrence: None)
  Receive Date: 20081119
  Receipt Date: 20080918
  Transmission Date: 20090506
  Serious: No
  Sender: FDA-Public Use
  Company Number: WAES 0806USA01579

PATIENT
  Age: 66 Year
  Sex: Female

DRUGS (4)
  1. JANUVIA [Suspect]
     Indication: TYPE 2 DIABETES MELLITUS
     Dosage: 100 MG/DAILY/PO
     Route: 048
     Dates: start: 20080511
  2. COUMADIN [Concomitant]
  3. HYDROCODONE BITARTRATE [Concomitant]
  4. IBUPROFEN TABLETS [Concomitant]

REACTIONS (7)
  - DECREASED APPETITE [None]
  - FEELING JITTERY [None]
  - HEADACHE [None]
  - MALAISE [None]
  - MUSCULAR WEAKNESS [None]
  - VISION BLURRED [None]
  - WEIGHT DECREASED [None]
